FAERS Safety Report 17495833 (Version 1)
Quarter: 2020Q1

REPORT INFORMATION
  Report Type: Spontaneous
  Country: IT (occurrence: IT)
  Receive Date: 20200304
  Receipt Date: 20200304
  Transmission Date: 20200409
  Serious: Yes (Life-Threatening)
  Sender: FDA-Public Use
  Company Number: NVSC2020IT059715

PATIENT
  Age: 48 Year
  Sex: Female

DRUGS (1)
  1. OMEPRAZOLE. [Suspect]
     Active Substance: OMEPRAZOLE
     Indication: MICROCYTIC ANAEMIA
     Dosage: 40 MG, TOTAL
     Route: 042
     Dates: start: 20191201, end: 20191201

REACTIONS (3)
  - Dyspnoea [Recovered/Resolved]
  - Band sensation [Recovered/Resolved]
  - Anaphylactic shock [Recovered/Resolved]

NARRATIVE: CASE EVENT DATE: 20191201
